FAERS Safety Report 12507120 (Version 1)
Quarter: 2016Q2

REPORT INFORMATION
  Report Type: Spontaneous
  Country: US (occurrence: US)
  Receive Date: 20160629
  Receipt Date: 20160629
  Transmission Date: 20160815
  Serious: No
  Sender: FDA-Public Use
  Company Number: US-TEVA-644780USA

PATIENT
  Sex: Female
  Weight: 51.26 kg

DRUGS (2)
  1. SIMVASTATIN. [Suspect]
     Active Substance: SIMVASTATIN
     Dosage: 40 MILLIGRAM DAILY;
  2. SIMVASTATIN. [Suspect]
     Active Substance: SIMVASTATIN
     Dosage: 40 MILLIGRAM DAILY;

REACTIONS (4)
  - Paraesthesia [Unknown]
  - Neuropathy peripheral [Unknown]
  - Blood cholesterol increased [Unknown]
  - Hypoaesthesia [Unknown]
